FAERS Safety Report 22040926 (Version 1)
Quarter: 2023Q1

REPORT INFORMATION
  Report Type: Spontaneous
  Country: US (occurrence: None)
  Receive Date: 20230224
  Receipt Date: 20230224
  Transmission Date: 20230417
  Serious: Yes (Hospitalization)
  Sender: FDA-Public Use
  Company Number: None

PATIENT
  Sex: Male

DRUGS (1)
  1. FORTEO [Suspect]
     Active Substance: TERIPARATIDE
     Indication: Osteoporosis
     Dosage: OTHER STRENGTH : 250 MCG/ML;?FREQUENCY : DAILY;?
     Route: 058
     Dates: start: 202208

REACTIONS (3)
  - Vomiting [None]
  - Pyrexia [None]
  - Neoplasm malignant [None]
